FAERS Safety Report 10631893 (Version 1)
Quarter: 2014Q4

REPORT INFORMATION
  Report Type: Spontaneous
  Country: IN (occurrence: None)
  Receive Date: 20141203
  Receipt Date: 20141203
  Transmission Date: 20150529
  Serious: Yes (Other)
  Sender: FDA-Public Use
  Company Number: 2014HINLIT1028

PATIENT
  Age: 21 Year
  Sex: Male

DRUGS (1)
  1. LITHIUM [Suspect]
     Active Substance: LITHIUM CARBONATE
     Indication: BIPOLAR DISORDER

REACTIONS (9)
  - Malaise [None]
  - Asthenia [None]
  - Skin lesion [None]
  - Psoriasis [None]
  - Tubulointerstitial nephritis [None]
  - Mental disorder [None]
  - Impaired work ability [None]
  - Decreased appetite [None]
  - Renal failure [None]
